FAERS Safety Report 7189962-X (Version None)
Quarter: 2010Q4

REPORT INFORMATION
  Report Type: 
  Country: None (occurrence: None)
  Receive Date: 20101223
  Receipt Date: 20101210
  Transmission Date: 20110411
  Serious: Yes (Death)
  Sender: FDA-Public Use
  Company Number: US-CELGENEUS-163-21880-10121401

PATIENT
  Sex: Female

DRUGS (7)
  1. REVLIMID [Suspect]
     Indication: MULTIPLE MYELOMA
     Route: 048
     Dates: start: 20070601, end: 20070101
  2. REVLIMID [Suspect]
     Route: 048
     Dates: start: 20101101
  3. EFFEXOR [Concomitant]
     Route: 065
  4. PROTONIX [Concomitant]
     Route: 065
  5. COUMADIN [Concomitant]
     Route: 065
  6. FOLIC ACID [Concomitant]
     Route: 065
  7. VELCADE [Concomitant]
     Route: 050

REACTIONS (1)
  - DEATH [None]
